FAERS Safety Report 8490015-9 (Version None)
Quarter: 2012Q3

REPORT INFORMATION
  Report Type: 
  Country: None (occurrence: None)
  Receive Date: 20120705
  Receipt Date: 20120619
  Transmission Date: 20120928
  Serious: Yes (Other)
  Sender: FDA-Public Use
  Company Number: CHPA2012US013479

PATIENT
  Age: 77 Year
  Sex: Female

DRUGS (3)
  1. EXCEDRIN TENSION HEADACHE CAPLETS [Suspect]
     Indication: HEADACHE
     Dosage: 0.5-1 DF, PRN
     Route: 048
     Dates: start: 19800101
  2. EXCEDRIN TENSION HEADACHE CAPLETS [Suspect]
     Dosage: 2 DF, UNK
     Route: 048
  3. INDOCIN [Concomitant]
     Indication: HEADACHE

REACTIONS (7)
  - EPSTEIN-BARR VIRUS INFECTION [None]
  - HEADACHE [None]
  - INAPPROPRIATE SCHEDULE OF DRUG ADMINISTRATION [None]
  - WRONG TECHNIQUE IN DRUG USAGE PROCESS [None]
  - UNDERDOSE [None]
  - AGITATION [None]
  - ABDOMINAL DISCOMFORT [None]
